FAERS Safety Report 18100787 (Version 4)
Quarter: 2020Q3

REPORT INFORMATION
  Report Type: Spontaneous
  Country: DE (occurrence: DE)
  Receive Date: 20200731
  Receipt Date: 20200915
  Transmission Date: 20201103
  Serious: Yes (Other)
  Sender: FDA-Public Use
  Company Number: DE-JNJFOC-20200723667

PATIENT
  Age: 56 Year
  Sex: Male
  Weight: 150 kg

DRUGS (5)
  1. IBUPROFEN. [Concomitant]
     Active Substance: IBUPROFEN
  2. PANTOPRAZOLE [Concomitant]
     Active Substance: PANTOPRAZOLE
  3. DUROGESIC SMAT [Suspect]
     Active Substance: FENTANYL
     Indication: PRODUCT USED FOR UNKNOWN INDICATION
     Dosage: EVERY 2 DAYS ONE PATCH
     Route: 062
  4. DUROGESIC SMAT [Suspect]
     Active Substance: FENTANYL
  5. DUROGESIC SMAT [Suspect]
     Active Substance: FENTANYL

REACTIONS (5)
  - Product packaging issue [Unknown]
  - Headache [Recovered/Resolved]
  - Hyperhidrosis [Recovered/Resolved]
  - Blood pressure abnormal [Unknown]
  - Product adhesion issue [Unknown]

NARRATIVE: CASE EVENT DATE: 20200711
